FAERS Safety Report 8385341-8 (Version None)
Quarter: 2012Q2

REPORT INFORMATION
  Report Type: 
  Country: None (occurrence: None)
  Receive Date: 20120525
  Receipt Date: 20120516
  Transmission Date: 20120825
  Serious: No
  Sender: FDA-Public Use
  Company Number: US-BIOGENIDEC-2012BI017461

PATIENT
  Age: 40 Year
  Sex: Male

DRUGS (3)
  1. AVONEX [Concomitant]
     Indication: MULTIPLE SCLEROSIS
     Route: 030
     Dates: start: 20080528
  2. TYSABRI [Suspect]
     Route: 042
     Dates: start: 20090504
  3. TYSABRI [Suspect]
     Indication: MULTIPLE SCLEROSIS
     Route: 042
     Dates: start: 20080205, end: 20080402

REACTIONS (3)
  - NAUSEA [None]
  - WEIGHT DECREASED [None]
  - VOMITING [None]
